FAERS Safety Report 11173275 (Version 1)
Quarter: 2015Q2

REPORT INFORMATION
  Report Type: Spontaneous
  Country: US (occurrence: US)
  Receive Date: 20150608
  Receipt Date: 20150608
  Transmission Date: 20150821
  Serious: No
  Sender: FDA-Public Use
  Company Number: US-ASTRAZENECA-2015SE52921

PATIENT
  Age: 27392 Day
  Sex: Male
  Weight: 75.3 kg

DRUGS (2)
  1. LOSARTIN [Concomitant]
     Active Substance: LOSARTAN
     Indication: HYPERTENSION
     Route: 048
  2. SYMBICORT [Suspect]
     Active Substance: BUDESONIDE\FORMOTEROL FUMARATE DIHYDRATE
     Indication: ASTHMA
     Dosage: 160 4.5  2 PUFFS,TWO TIMES A DAY
     Route: 055
     Dates: start: 20150527

REACTIONS (2)
  - Dysgeusia [Unknown]
  - Body height decreased [Unknown]
